FAERS Safety Report 6029141-2 (Version None)
Quarter: 2009Q1

REPORT INFORMATION
  Report Type: 
  Country: None (occurrence: None)
  Receive Date: 20090102
  Receipt Date: 20081218
  Transmission Date: 20090719
  Serious: Yes (Death)
  Sender: FDA-Public Use
  Company Number: 08-231

PATIENT
  Age: 98 Year
  Sex: Male

DRUGS (11)
  1. FAZACLO ODT [Suspect]
     Dosage: 17.5 MG PO QHS
     Route: 048
     Dates: start: 20080421, end: 20081117
  2. IPRATROPIUM/ALBUTEROL INHALATION [Concomitant]
  3. LEVAQUIN [Concomitant]
  4. BISACODYL [Concomitant]
  5. MEGESTROL ACETATE [Concomitant]
  6. METOPROLOL TARTRATE [Concomitant]
  7. LEXAPRO [Concomitant]
  8. DOXYCYCLINE [Concomitant]
  9. OMEPRAZOLE [Concomitant]
  10. HALOPERIDOL [Concomitant]
  11. TRAZODONE HCL [Concomitant]

REACTIONS (1)
  - DEATH [None]
